FAERS Safety Report 14276604 (Version 2)
Quarter: 2018Q1

REPORT INFORMATION
  Report Type: Spontaneous
  Country: JP (occurrence: JP)
  Receive Date: 20171212
  Receipt Date: 20180105
  Transmission Date: 20180508
  Serious: Yes (Other)
  Sender: FDA-Public Use
  Company Number: JP-ROCHE-2040448

PATIENT
  Age: 21 Year
  Sex: Female

DRUGS (2)
  1. RITUXAN [Suspect]
     Active Substance: RITUXIMAB
     Indication: ANTIPHOSPHOLIPID SYNDROME
     Dosage: 10 MG/ML
     Route: 041
  2. HEPARIN SODIUM. [Concomitant]
     Active Substance: HEPARIN SODIUM
     Route: 065

REACTIONS (3)
  - Haemobilia [Unknown]
  - Platelet count decreased [Recovered/Resolved]
  - Off label use [Unknown]
